FAERS Safety Report 10364853 (Version 1)
Quarter: 2014Q3

REPORT INFORMATION
  Report Type: Other
  Country: GB (occurrence: GB)
  Receive Date: 20140806
  Receipt Date: 20140806
  Transmission Date: 20150326
  Serious: Yes (Hospitalization, Other)
  Sender: FDA-Public Use
  Company Number: GB-MYLAN-2014S1017596

PATIENT

DRUGS (2)
  1. FLUOXETINE [Suspect]
     Active Substance: FLUOXETINE\FLUOXETINE HYDROCHLORIDE
     Indication: DEPRESSION
     Dosage: UNK UNK,QD
     Route: 048
     Dates: start: 20140509, end: 20140606
  2. MIRTAZAPINE. [Suspect]
     Active Substance: MIRTAZAPINE
     Indication: DEPRESSION
     Dosage: UNK UNK,QD (ONE AT NIGHT BEFORE BED)
     Route: 048
     Dates: start: 20140606, end: 20140620

REACTIONS (12)
  - Chills [None]
  - Panic attack [Recovering/Resolving]
  - Muscle spasms [Recovered/Resolved]
  - Chest discomfort [Unknown]
  - Mental disorder [Recovering/Resolving]
  - Chills [Recovered/Resolved with Sequelae]
  - Diarrhoea [Not Recovered/Not Resolved]
  - Nightmare [Recovered/Resolved with Sequelae]
  - Vomiting [Recovered/Resolved]
  - Night sweats [Recovered/Resolved with Sequelae]
  - Dyspnoea [Recovered/Resolved]
  - Withdrawal syndrome [Unknown]

NARRATIVE: CASE EVENT DATE: 20140628
